FAERS Safety Report 4984054-X (Version None)
Quarter: 2006Q1

REPORT INFORMATION
  Report Type: 
  Country: None (occurrence: None)
  Receive Date: 20060302
  Receipt Date: 20051102
  Transmission Date: 20060701
  Serious: No
  Sender: FDA-Public Use
  Company Number: S05-USA-04833-01

PATIENT
  Sex: Female

DRUGS (3)
  1. CAMPRAL [Suspect]
     Indication: ALCOHOLISM
     Dates: start: 20050101, end: 20050101
  2. LAMICTAL [Concomitant]
  3. EFFEXOR [Concomitant]

REACTIONS (1)
  - RASH [None]
